FAERS Safety Report 8075324-X (Version None)
Quarter: 2012Q1

REPORT INFORMATION
  Report Type: 
  Country: None (occurrence: None)
  Receive Date: 20120127
  Receipt Date: 20111004
  Transmission Date: 20120608
  Serious: Yes (Hospitalization)
  Sender: FDA-Public Use
  Company Number: US-MYLANLABS-2011S1020939

PATIENT
  Sex: Female

DRUGS (6)
  1. CLONIDINE [Suspect]
     Indication: BLOOD PRESSURE INCREASED
     Dosage: CHANGED QW
     Route: 062
     Dates: start: 20110801
  2. HYDRALAZINE HCL [Concomitant]
  3. CLONIDINE [Concomitant]
  4. AMLODIPINE [Concomitant]
  5. DIOVAN [Concomitant]
  6. ATENOLOL [Concomitant]

REACTIONS (2)
  - BLOOD PRESSURE INCREASED [None]
  - DRUG INEFFECTIVE [None]
